FAERS Safety Report 7230614-5 (Version None)
Quarter: 2011Q1

REPORT INFORMATION
  Report Type: 
  Country: None (occurrence: None)
  Receive Date: 20110118
  Receipt Date: 20110112
  Transmission Date: 20110831
  Serious: Yes (Death)
  Sender: FDA-Public Use
  Company Number: PHBS2007JP16519

PATIENT
  Age: 56 Year
  Sex: Male
  Weight: 81 kg

DRUGS (6)
  1. METHYLPREDNISOLONE [Concomitant]
     Dosage: 500 MG, DAILY
  2. PARIET [Concomitant]
     Dosage: 10 MG, UNK
     Route: 048
     Dates: start: 20060512, end: 20060622
  3. NEORAL [Suspect]
     Indication: NEPHRITIS
     Dosage: 150 MG, UNK
     Route: 048
     Dates: start: 20060609, end: 20060622
  4. PREDONINE [Suspect]
     Indication: NEPHRITIS
     Dosage: 60 MG, UNK
     Route: 048
     Dates: start: 20060522
  5. PREDONINE [Suspect]
     Dosage: 40 MG/DAY
     Route: 048
     Dates: end: 20060622
  6. BAKTAR [Concomitant]
     Dosage: 1 G, UNK
     Route: 048
     Dates: start: 20060522, end: 20060622

REACTIONS (8)
  - ABDOMINAL PAIN [None]
  - CYTOMEGALOVIRUS ENTEROCOLITIS [None]
  - HAEMATOCHEZIA [None]
  - ANAEMIA [None]
  - HAEMOGLOBIN DECREASED [None]
  - GASTROINTESTINAL ULCER HAEMORRHAGE [None]
  - MELAENA [None]
  - SHOCK HAEMORRHAGIC [None]
